FAERS Safety Report 22644594 (Version 1)
Quarter: 2023Q2

REPORT INFORMATION
  Report Type: Report from Study
  Country: CA (occurrence: CA)
  Receive Date: 20230627
  Receipt Date: 20230627
  Transmission Date: 20230722
  Serious: Yes (Hospitalization, Other)
  Sender: FDA-Public Use
  Company Number: CA-002147023-NVSC2023CA143289

PATIENT
  Age: 20 Year

DRUGS (7)
  1. QUETIAPINE [Suspect]
     Active Substance: QUETIAPINE
     Indication: Chronic spontaneous urticaria
     Dosage: 300 MG, QD
     Route: 048
  2. TROPINE BENZYLATE [Concomitant]
     Active Substance: TROPINE BENZYLATE
     Indication: Product used for unknown indication
     Dosage: UNK, QD
     Route: 048
  3. BREXPIPRAZOLE [Concomitant]
     Active Substance: BREXPIPRAZOLE
     Indication: Product used for unknown indication
     Dosage: UNK, QD
     Route: 048
  4. VITAMIN D NOS [Concomitant]
     Active Substance: VITAMIN D NOS
     Indication: Product used for unknown indication
     Dosage: UNK, QD (STRENGTH: 1000 UNITS)
     Route: 048
  5. POLYETHYLENE GLYCOLS [Concomitant]
     Active Substance: POLYETHYLENE GLYCOLS
     Indication: Product used for unknown indication
     Dosage: UNK, QD
     Route: 048
  6. PRAZOSIN [Concomitant]
     Active Substance: PRAZOSIN
     Indication: Product used for unknown indication
     Dosage: UNK, QD
     Route: 048
  7. CETIRIZINE [Concomitant]
     Active Substance: CETIRIZINE HYDROCHLORIDE
     Indication: Product used for unknown indication
     Dosage: 20 MG, QD
     Route: 065

REACTIONS (17)
  - Vomiting [Unknown]
  - Diarrhoea [Unknown]
  - Mast cell activation syndrome [Unknown]
  - Intentional self-injury [Unknown]
  - Suicidal ideation [Unknown]
  - Conjunctivitis [Unknown]
  - Blister [Unknown]
  - Borderline personality disorder [Unknown]
  - Anxiety [Unknown]
  - Depression [Unknown]
  - Eating disorder [Unknown]
  - Postural orthostatic tachycardia syndrome [Unknown]
  - Polycystic ovaries [Unknown]
  - Tachycardia [Unknown]
  - Abdominal pain upper [Unknown]
  - Nausea [Unknown]
  - Product use in unapproved indication [Unknown]
